FAERS Safety Report 26041276 (Version 1)
Quarter: 2025Q4

REPORT INFORMATION
  Report Type: Spontaneous
  Country: US (occurrence: None)
  Receive Date: 20251113
  Receipt Date: 20251113
  Transmission Date: 20260117
  Serious: Yes (Hospitalization)
  Sender: FDA-CTU
  Company Number: None

PATIENT
  Age: 41 Year
  Sex: Female

DRUGS (1)
  1. WINREVAIR [Suspect]
     Active Substance: SOTATERCEPT-CSRK
     Route: 058

REACTIONS (10)
  - Headache [None]
  - Chest pain [None]
  - Nausea [None]
  - Pain in jaw [None]
  - Swelling face [None]
  - Pulmonary pain [None]
  - Axillary pain [None]
  - Crying [None]
  - Unresponsive to stimuli [None]
  - Troponin increased [None]

NARRATIVE: CASE EVENT DATE: 20251106
